FAERS Safety Report 5025241-4 (Version None)
Quarter: 2006Q2

REPORT INFORMATION
  Report Type: 
  Country: None (occurrence: None)
  Receive Date: 20060608
  Receipt Date: 20060608
  Transmission Date: 20061013
  Serious: Yes (Other)
  Sender: FDA-Public Use
  Company Number: None

PATIENT
  Sex: Female
  Weight: 19.9583 kg

DRUGS (7)
  1. ZYRTEC [Suspect]
     Indication: FOOD ALLERGY
     Dosage: 1 TSP QD APPROX 1 YR AGO PO INCREASED TO 1.5 TSP QD IN APRIL 06 PO
     Route: 048
     Dates: start: 20060401, end: 20060518
  2. ZYRTEC [Suspect]
     Indication: FOOD ALLERGY
     Dosage: 1 TSP QD APPROX 1 YR AGO PO INCREASED TO 1.5 TSP QD IN APRIL 06 PO
     Route: 048
     Dates: start: 20050101
  3. FLONASE [Concomitant]
  4. SINGULAIR [Concomitant]
  5. ALBUTEROL [Concomitant]
  6. NACL [Concomitant]
  7. PULMIICORT [Concomitant]

REACTIONS (8)
  - ABDOMINAL PAIN [None]
  - ALANINE AMINOTRANSFERASE INCREASED [None]
  - ASPARTATE AMINOTRANSFERASE INCREASED [None]
  - BACK PAIN [None]
  - BODY TEMPERATURE INCREASED [None]
  - HEPATITIS C ANTIBODY POSITIVE [None]
  - NIGHT SWEATS [None]
  - PAIN IN EXTREMITY [None]
